FAERS Safety Report 23081010 (Version 1)
Quarter: 2023Q4

REPORT INFORMATION
  Report Type: Spontaneous
  Country: RS (occurrence: RS)
  Receive Date: 20231018
  Receipt Date: 20231018
  Transmission Date: 20240109
  Serious: Yes (Other)
  Sender: FDA-Public Use
  Company Number: RS-Merck Healthcare KGaA-2023480313

PATIENT
  Age: 70 Year
  Sex: Male

DRUGS (11)
  1. ERBITUX [Suspect]
     Active Substance: CETUXIMAB
     Indication: Colon cancer metastatic
     Dosage: UNK UNK, UNKNOWN
     Route: 065
     Dates: start: 202005, end: 202008
  2. ERBITUX [Suspect]
     Active Substance: CETUXIMAB
     Dosage: UNK UNK, UNKNOWN
     Route: 065
     Dates: start: 202306
  3. LEUCOVORIN [Concomitant]
     Active Substance: LEUCOVORIN\LEUCOVORIN CALCIUM
     Indication: Colon cancer metastatic
     Dosage: UNK UNK, UNKNOWN
     Route: 065
     Dates: start: 202005, end: 202008
  4. LEUCOVORIN [Concomitant]
     Active Substance: LEUCOVORIN\LEUCOVORIN CALCIUM
     Dosage: UNK UNK, UNKNOWN
     Route: 065
     Dates: start: 20200915, end: 202011
  5. LEUCOVORIN [Concomitant]
     Active Substance: LEUCOVORIN\LEUCOVORIN CALCIUM
     Dosage: UNK UNK, UNKNOWN
     Route: 065
     Dates: start: 202306
  6. FLUOROURACIL [Concomitant]
     Active Substance: FLUOROURACIL
     Indication: Colon cancer metastatic
     Dosage: UNK UNK, UNKNOWN
     Route: 065
     Dates: start: 202005, end: 202008
  7. FLUOROURACIL [Concomitant]
     Active Substance: FLUOROURACIL
     Dosage: UNK UNK, UNKNOWN
     Route: 065
     Dates: start: 20200915, end: 202011
  8. FLUOROURACIL [Concomitant]
     Active Substance: FLUOROURACIL
     Dosage: UNK UNK, UNKNOWN
     Route: 065
     Dates: start: 202306
  9. IRINOTECAN [Concomitant]
     Active Substance: IRINOTECAN
     Indication: Colon cancer metastatic
     Dosage: UNK UNK, UNKNOWN
     Route: 065
     Dates: start: 202005, end: 202008
  10. IRINOTECAN [Concomitant]
     Active Substance: IRINOTECAN
     Dosage: UNK UNK, UNKNOWN
     Route: 065
     Dates: start: 20200915, end: 202011
  11. IRINOTECAN [Concomitant]
     Active Substance: IRINOTECAN
     Dosage: UNK UNK, UNKNOWN
     Route: 065
     Dates: start: 202306

REACTIONS (8)
  - Choking [Unknown]
  - Abdominal discomfort [Unknown]
  - Chest discomfort [Unknown]
  - Tachycardia [Unknown]
  - Dyspnoea [Unknown]
  - Chills [Unknown]
  - Hypotension [Unknown]
  - Erythema [Unknown]

NARRATIVE: CASE EVENT DATE: 20230619
